FAERS Safety Report 17161863 (Version 1)
Quarter: 2019Q4

REPORT INFORMATION
  Report Type: Spontaneous
  Country: US (occurrence: DE)
  Receive Date: 20191217
  Receipt Date: 20191217
  Transmission Date: 20200122
  Serious: Yes (Other)
  Sender: FDA-Public Use
  Company Number: DE-TEVA-618735GER

PATIENT
  Age: 1 Day
  Sex: Male

DRUGS (7)
  1. ZYPREXA [Suspect]
     Active Substance: OLANZAPINE
     Indication: OBSESSIVE-COMPULSIVE DISORDER
     Dosage: 5 MILLIGRAM DAILY;
     Route: 048
     Dates: start: 2010
  2. ZYPREXA [Suspect]
     Active Substance: OLANZAPINE
     Dosage: 5 MILLIGRAM DAILY;
     Route: 064
     Dates: start: 20140419, end: 20150119
  3. FOLSAEURE [Concomitant]
     Active Substance: FOLIC ACID
     Indication: PROPHYLAXIS OF NEURAL TUBE DEFECT
     Route: 064
     Dates: start: 20140419, end: 20150105
  4. VENLAFAXINE [Suspect]
     Active Substance: VENLAFAXINE HYDROCHLORIDE
     Indication: OBSESSIVE-COMPULSIVE DISORDER
     Dosage: 225 MG/D SINCE 2010. 150 MG/D TILL WEEK 29, THEN 225 MG/D.
     Route: 064
     Dates: start: 20140419, end: 20150119
  5. AMOXICILLIN. [Concomitant]
     Active Substance: AMOXICILLIN
     Route: 064
     Dates: start: 20150118, end: 20150119
  6. GRIPPEIMPFSTOFF [Concomitant]
     Active Substance: INFLUENZA VIRUS VACCINE
     Indication: IMMUNISATION
     Route: 064
  7. CERVIDIL [Concomitant]
     Active Substance: DINOPROSTONE
     Indication: LABOUR INDUCTION
     Route: 064
     Dates: start: 20150119, end: 20150119

REACTIONS (4)
  - Foetal exposure during pregnancy [Unknown]
  - Oxygen saturation decreased [Recovered/Resolved]
  - Lethargy [Recovered/Resolved]
  - Agitation neonatal [Recovered/Resolved]

NARRATIVE: CASE EVENT DATE: 20150119
